FAERS Safety Report 5418672-1 (Version None)
Quarter: 2007Q3

REPORT INFORMATION
  Report Type: 
  Country: None (occurrence: None)
  Receive Date: 20070817
  Receipt Date: 20070809
  Transmission Date: 20080115
  Serious: Yes (Other)
  Sender: FDA-Public Use
  Company Number: US-PFIZER INC-2006124562

PATIENT
  Sex: Male

DRUGS (1)
  1. LIPITOR [Suspect]
     Indication: BLOOD CHOLESTEROL INCREASED
     Dosage: DAILY DOSE:10MG
     Dates: start: 19990501, end: 20031024

REACTIONS (11)
  - AMNESIA [None]
  - BALANCE DISORDER [None]
  - COGNITIVE DISORDER [None]
  - DEPRESSION [None]
  - DISORIENTATION [None]
  - DYSPHAGIA [None]
  - FATIGUE [None]
  - GAIT DISTURBANCE [None]
  - MYOPATHY [None]
  - NEUROPATHY PERIPHERAL [None]
  - SPEECH DISORDER [None]
